FAERS Safety Report 8617350-5 (Version None)
Quarter: 2012Q3

REPORT INFORMATION
  Report Type: 
  Country: None (occurrence: None)
  Receive Date: 20120823
  Receipt Date: 20120402
  Transmission Date: 20120928
  Serious: Yes (Hospitalization)
  Sender: FDA-Public Use
  Company Number: US-009507513-1208USA007188

PATIENT

DRUGS (4)
  1. INSULIN [Concomitant]
     Indication: TYPE 1 DIABETES MELLITUS
  2. PEGASYS [Suspect]
     Indication: CHRONIC HEPATITIS
     Dosage: 180 MICROGRAM, QW
     Dates: start: 20111007
  3. VICTRELIS [Suspect]
     Indication: HEPATITIS C
     Dosage: 4 DF, TID
     Route: 048
     Dates: start: 20111111
  4. RIBAVIRIN [Suspect]
     Indication: HEPATITIS C
     Dosage: 1200 MG, QD
     Dates: start: 20111007

REACTIONS (7)
  - DRY SKIN [None]
  - BLOOD GLUCOSE DECREASED [None]
  - RED BLOOD CELL COUNT DECREASED [None]
  - DECREASED APPETITE [None]
  - INSOMNIA [None]
  - SKIN FISSURES [None]
  - BLOOD GLUCOSE FLUCTUATION [None]
